FAERS Safety Report 6096016-2 (Version None)
Quarter: 2009Q1

REPORT INFORMATION
  Report Type: 
  Country: None (occurrence: None)
  Receive Date: 20090227
  Receipt Date: 20080808
  Transmission Date: 20090719
  Serious: Yes (Other)
  Sender: FDA-Public Use
  Company Number: A0741790A

PATIENT
  Age: 55 Year
  Sex: Female

DRUGS (7)
  1. LAMICTAL [Suspect]
     Indication: PANIC ATTACK
     Dosage: 300MG PER DAY
     Route: 048
     Dates: start: 20070101
  2. TRAZODONE HCL [Concomitant]
  3. FLUOXETINE [Concomitant]
  4. CLONAZEPAM [Concomitant]
  5. LEVOTHYROXINE SODIUM [Concomitant]
  6. LOVASTATIN [Concomitant]
  7. TRICOR [Concomitant]

REACTIONS (1)
  - GASTRIC HAEMORRHAGE [None]
